FAERS Safety Report 5421931-X (Version None)
Quarter: 2007Q3

REPORT INFORMATION
  Report Type: 
  Country: None (occurrence: None)
  Receive Date: 20070822
  Receipt Date: 20070814
  Transmission Date: 20080115
  Serious: Yes (Hospitalization, Disabling)
  Sender: FDA-Public Use
  Company Number: US-JNJFOC-20070306624

PATIENT
  Sex: Male
  Weight: 69.4 kg

DRUGS (4)
  1. FENTANYL TRANSDERMAL SYSTEM [Suspect]
     Route: 062
  2. FENTANYL TRANSDERMAL SYSTEM [Suspect]
     Indication: ARTHRITIS
     Route: 062
  3. FENTANYL TRANSDERMAL SYSTEM [Suspect]
     Indication: PAIN
     Route: 062
  4. IBUPROFEN [Concomitant]
     Indication: PAIN
     Route: 048

REACTIONS (5)
  - ABASIA [None]
  - ARTHRALGIA [None]
  - DAYDREAMING [None]
  - INSOMNIA [None]
  - PAIN IN EXTREMITY [None]
